FAERS Safety Report 20702094 (Version 5)
Quarter: 2022Q3

REPORT INFORMATION
  Report Type: Report from Study
  Country: US (occurrence: US)
  Receive Date: 20220412
  Receipt Date: 20220908
  Transmission Date: 20221027
  Serious: Yes (Life-Threatening)
  Sender: FDA-Public Use
  Company Number: US-PFIZER INC-202200453530

PATIENT
  Age: 57 Year
  Sex: Female

DRUGS (5)
  1. LYRICA [Suspect]
     Active Substance: PREGABALIN
     Indication: Back pain
     Dosage: 100 MG, AS NEEDED (BY MOUTH THREE TIMES A DAY AS NEEDED)
     Route: 048
  2. LYRICA [Suspect]
     Active Substance: PREGABALIN
     Indication: Intervertebral disc degeneration
     Dosage: 300 MG, 3X/DAY (DIRECTIONS: 300MG 1 PILL TID)
     Route: 048
  3. LYRICA [Suspect]
     Active Substance: PREGABALIN
     Indication: Neuropathy peripheral
  4. LYRICA [Suspect]
     Active Substance: PREGABALIN
     Indication: Neuralgia
  5. LYRICA [Suspect]
     Active Substance: PREGABALIN
     Indication: Diabetic neuropathy

REACTIONS (9)
  - Eating disorder [Unknown]
  - Movement disorder [Unknown]
  - Fall [Unknown]
  - Limb injury [Unknown]
  - Skin mass [Unknown]
  - Pain [Unknown]
  - Hyperhidrosis [Unknown]
  - Crying [Unknown]
  - Overdose [Unknown]
